FAERS Safety Report 8589226-3 (Version None)
Quarter: 2012Q2

REPORT INFORMATION
  Report Type: 
  Country: None (occurrence: None)
  Receive Date: 20120423
  Receipt Date: 20090605
  Transmission Date: 20120825
  Serious: Yes (Other)
  Sender: FDA-Public Use
  Company Number: PHEH2009US05765

PATIENT
  Sex: Female

DRUGS (2)
  1. LOPRESSOR [Suspect]
     Dosage: 100 MG, QD
  2. COUMADIN [Suspect]

REACTIONS (2)
  - MOOD ALTERED [None]
  - HALLUCINATION [None]
